FAERS Safety Report 8533731-2 (Version None)
Quarter: 2012Q3

REPORT INFORMATION
  Report Type: 
  Country: None (occurrence: None)
  Receive Date: 20120724
  Receipt Date: 20120712
  Transmission Date: 20120928
  Serious: Yes (Other)
  Sender: FDA-Public Use
  Company Number: US-SANOFI-AVENTIS-2012SA050371

PATIENT
  Age: 67 Year
  Sex: Female

DRUGS (8)
  1. WATER PILLS [Concomitant]
  2. ANALGESICS [Concomitant]
     Indication: PAIN
  3. VITAMIN TAB [Concomitant]
  4. LANTUS [Suspect]
     Dosage: DOSE:50 UNIT(S)
     Route: 058
     Dates: start: 20070101
  5. SOLOSTAR [Suspect]
     Dates: start: 20070101
  6. IRON [Concomitant]
  7. CYANOCOBALAMIN [Concomitant]
  8. ORAL ANTIDIABETICS [Concomitant]

REACTIONS (2)
  - GLAUCOMA [None]
  - VISUAL IMPAIRMENT [None]
